FAERS Safety Report 4753477-6 (Version None)
Quarter: 2005Q3

REPORT INFORMATION
  Report Type: 
  Country: None (occurrence: None)
  Receive Date: 20050826
  Receipt Date: 20050718
  Transmission Date: 20060218
  Serious: Yes (Other)
  Sender: FDA-Public Use
  Company Number: PHEH2005US07973

PATIENT
  Age: 72 Year
  Sex: Female

DRUGS (10)
  1. AREDIA [Suspect]
     Indication: METASTASES TO BONE
     Dosage: 4 MG, QMO
     Dates: start: 20010905, end: 20050520
  2. DEXAMETHASONE [Concomitant]
     Dosage: 4MG-16MGIV WITH CHEMO
     Dates: start: 20010816, end: 20050729
  3. FASLODEX [Concomitant]
     Dosage: 250 MG, QMO
     Dates: start: 20030801
  4. TAXOTERE [Concomitant]
     Dosage: 138MG Q3WKS
     Dates: start: 20010801, end: 20021031
  5. XELODA [Concomitant]
     Dosage: 1150MG-2000MG 14DX10CYCLES
     Dates: start: 20021201, end: 20030601
  6. TRASTUZUMAB [Concomitant]
     Dosage: 150 MG, QW
     Dates: start: 20030801, end: 20031201
  7. TRASTUZUMAB [Concomitant]
     Dosage: 180MG Q3WKS
     Dates: start: 20041101, end: 20050701
  8. DOXIL [Concomitant]
     Dosage: 70 MG, QMO
     Dates: start: 20040801, end: 20041101
  9. GEMZAR [Concomitant]
     Dosage: 1500 MG, QW
     Dates: start: 20031001, end: 20031201
  10. MS CONTIN [Concomitant]

REACTIONS (1)
  - ASEPTIC NECROSIS BONE [None]
